FAERS Safety Report 9061393 (Version 2)
Quarter: 2013Q1

REPORT INFORMATION
  Report Type: Spontaneous
  Country: ES (occurrence: ES)
  Receive Date: 20130204
  Receipt Date: 20130218
  Transmission Date: 20140127
  Serious: Yes (Other)
  Sender: FDA-Public Use
  Company Number: ES-TEVA-383561ISR

PATIENT
  Age: 50 Year
  Sex: Male

DRUGS (2)
  1. RIBAVIRINA [Suspect]
     Indication: CHRONIC HEPATITIS C
     Route: 048
     Dates: start: 201201, end: 201212
  2. PEGINTRON [Interacting]
     Indication: CHRONIC HEPATITIS C
     Dosage: 120 MICROGRAM DAILY;
     Route: 058
     Dates: start: 201201, end: 201212

REACTIONS (3)
  - Retinopathy [Recovering/Resolving]
  - Anxiety [Not Recovered/Not Resolved]
  - Drug interaction [Unknown]
